FAERS Safety Report 18308240 (Version 3)
Quarter: 2020Q4

REPORT INFORMATION
  Report Type: Report from Study
  Country: US (occurrence: US)
  Receive Date: 20200924
  Receipt Date: 20201222
  Transmission Date: 20210113
  Serious: Yes (Hospitalization, Other)
  Sender: FDA-Public Use
  Company Number: US-AGIOS-2009US02152

PATIENT

DRUGS (1)
  1. TIBSOVO [Suspect]
     Active Substance: IVOSIDENIB
     Indication: CHOLANGIOCARCINOMA
     Dosage: 250 MG, 2 TABLETS (500 MG), QD
     Route: 048
     Dates: start: 20200827

REACTIONS (6)
  - Pharyngitis [Unknown]
  - Off label use [Unknown]
  - Metastases to bone [Unknown]
  - Hallucination [Unknown]
  - Fluid retention [Recovered/Resolved]
  - Cancer pain [Unknown]

NARRATIVE: CASE EVENT DATE: 20200827
